FAERS Safety Report 7637717-1 (Version None)
Quarter: 2011Q3

REPORT INFORMATION
  Report Type: 
  Country: None (occurrence: None)
  Receive Date: 20110727
  Receipt Date: 20110721
  Transmission Date: 20111222
  Serious: Yes (Hospitalization, Other)
  Sender: FDA-Public Use
  Company Number: US-BRISTOL-MYERS SQUIBB COMPANY-15916869

PATIENT

DRUGS (1)
  1. YERVOY [Suspect]

REACTIONS (3)
  - DEHYDRATION [None]
  - GOUT [None]
  - DIARRHOEA [None]
